FAERS Safety Report 8072237-4 (Version None)
Quarter: 2012Q1

REPORT INFORMATION
  Report Type: 
  Country: None (occurrence: None)
  Receive Date: 20120126
  Receipt Date: 20120120
  Transmission Date: 20120608
  Serious: No
  Sender: FDA-Public Use
  Company Number: US-PFIZER INC-2012017526

PATIENT
  Sex: Male
  Weight: 102 kg

DRUGS (3)
  1. ACETAMINOPHEN [Concomitant]
     Indication: ARTHRALGIA
     Dosage: UNK
  2. CIALIS [Suspect]
     Indication: ERECTILE DYSFUNCTION
     Dosage: 20 MG, DAILY
     Dates: start: 20110101, end: 20110601
  3. VIAGRA [Suspect]
     Indication: ERECTILE DYSFUNCTION
     Dosage: 50 MG, AS NEEDED
     Dates: start: 20100901, end: 20101201

REACTIONS (1)
  - DRUG INEFFECTIVE [None]
